FAERS Safety Report 4749685-0 (Version None)
Quarter: 2005Q3

REPORT INFORMATION
  Report Type: 
  Country: None (occurrence: None)
  Receive Date: 20050822
  Receipt Date: 20050811
  Transmission Date: 20060218
  Serious: Yes (Other)
  Sender: FDA-Public Use
  Company Number: US-ROCHE-414261

PATIENT
  Age: 21 Year
  Sex: Female

DRUGS (2)
  1. ACCUTANE [Suspect]
     Indication: ACNE
     Dosage: STOP DATE IN 2004.
     Route: 065
     Dates: start: 20040715, end: 20040815
  2. ISOTRETINOIN [Suspect]
     Indication: ACNE
     Route: 065
     Dates: start: 20040615, end: 20040820

REACTIONS (2)
  - GASTRIC INFECTION [None]
  - ULCER [None]
